FAERS Safety Report 5227428-4 (Version None)
Quarter: 2007Q1

REPORT INFORMATION
  Report Type: 
  Country: None (occurrence: None)
  Receive Date: 20070202
  Receipt Date: 20070123
  Transmission Date: 20070707
  Serious: Yes (Hospitalization)
  Sender: FDA-Public Use
  Company Number: PHBS2006NL20049

PATIENT
  Age: 46 Year
  Sex: Male

DRUGS (1)
  1. ZOMETA [Suspect]
     Indication: PROSTATE CANCER METASTATIC
     Dosage: UNK, EVERY 4 WEEKS
     Route: 042
     Dates: start: 20061220

REACTIONS (2)
  - MUSCLE SPASMS [None]
  - RESPIRATORY DISTRESS [None]
